FAERS Safety Report 8806220 (Version 1)
Quarter: 2012Q4

REPORT INFORMATION
  Report Type: Spontaneous
  Country: DK (occurrence: None)
  Receive Date: 20120918
  Receipt Date: 20120918
  Transmission Date: 20130627
  Serious: Yes (Hospitalization)
  Sender: FDA-Public Use
  Company Number: 2012MA011144

PATIENT
  Age: 52 Year
  Sex: Female

DRUGS (2)
  1. FEVERALL [Suspect]
     Dosage: 1 DF;  ; PO
     Route: 048
     Dates: start: 20120430, end: 20120430
  2. PANTORC [Suspect]

REACTIONS (3)
  - Face oedema [None]
  - Periorbital oedema [None]
  - Circumoral oedema [None]
